FAERS Safety Report 23897867 (Version 1)
Quarter: 2024Q2

REPORT INFORMATION
  Report Type: Spontaneous
  Country: DE (occurrence: DE)
  Receive Date: 20240524
  Receipt Date: 20240524
  Transmission Date: 20240715
  Serious: Yes (Other)
  Sender: FDA-Public Use
  Company Number: DE-TAKEDA-2024TUS050634

PATIENT
  Sex: Female

DRUGS (2)
  1. MESALAMINE [Suspect]
     Active Substance: MESALAMINE
     Indication: Colitis ulcerative
     Dosage: UNK
     Route: 065
  2. CORTISONE [Suspect]
     Active Substance: CORTISONE
     Indication: Product used for unknown indication
     Dosage: UNK
     Route: 065

REACTIONS (8)
  - Tunnel vision [Unknown]
  - Colitis ulcerative [Unknown]
  - Feeling abnormal [Unknown]
  - Disturbance in attention [Unknown]
  - Drug ineffective [Unknown]
  - Mood swings [Unknown]
  - Depression [Unknown]
  - Dizziness [Unknown]
